FAERS Safety Report 14869979 (Version 12)
Quarter: 2019Q1

REPORT INFORMATION
  Report Type: Report from Study
  Country: FR (occurrence: FR)
  Receive Date: 20180509
  Receipt Date: 20190322
  Transmission Date: 20190417
  Serious: Yes (Hospitalization, Congenital Anomaly, Other)
  Sender: FDA-Public Use
  Company Number: FR-MYLANLABS-2018M1029601

PATIENT
  Age: 39 Week
  Sex: Male
  Weight: 2 kg

DRUGS (3)
  1. ISENTRESS [Suspect]
     Active Substance: RALTEGRAVIR POTASSIUM
     Indication: HIV INFECTION
     Dosage: UNK
     Route: 064
     Dates: start: 20170608
  2. LAMIVUDINE. [Suspect]
     Active Substance: LAMIVUDINE
     Indication: HIV INFECTION
     Dosage: UNK
     Route: 064
  3. EPIVIR [Suspect]
     Active Substance: LAMIVUDINE
     Indication: PRODUCT USED FOR UNKNOWN INDICATION
     Dosage: UNK
     Route: 064
     Dates: start: 20170608, end: 20170608

REACTIONS (9)
  - Ear malformation [Unknown]
  - Hypoxic-ischaemic encephalopathy [Unknown]
  - Congenital chylothorax [Unknown]
  - Foetal exposure during pregnancy [Recovered/Resolved]
  - Oesophageal atresia [Recovered/Resolved with Sequelae]
  - Tracheal deviation [Unknown]
  - Tracheal fistula repair [Unknown]
  - Tracheo-oesophageal fistula [Unknown]
  - Hypotonia [Unknown]

NARRATIVE: CASE EVENT DATE: 20170608
